FAERS Safety Report 23869271 (Version 3)
Quarter: 2024Q3

REPORT INFORMATION
  Report Type: Spontaneous
  Country: JP (occurrence: JP)
  Receive Date: 20240517
  Receipt Date: 20240916
  Transmission Date: 20241017
  Serious: No
  Sender: Waylis
  Company Number: JP-WT-2024-01432

PATIENT

DRUGS (2)
  1. LUNESTA [Suspect]
     Active Substance: ESZOPICLONE
  2. ESTAZOLAM [Suspect]
     Active Substance: ESTAZOLAM
     Dates: start: 20240430, end: 20240430

REACTIONS (3)
  - Suicide attempt [Fatal]
  - Intentional overdose [Fatal]
  - Pneumonia [Fatal]

NARRATIVE: CASE EVENT DATE: 20240430
